FAERS Safety Report 24268720 (Version 1)
Quarter: 2024Q3

REPORT INFORMATION
  Report Type: Spontaneous
  Country: US (occurrence: None)
  Receive Date: 20240829
  Receipt Date: 20240829
  Transmission Date: 20241017
  Serious: Yes (unspecified)
  Sender: Public
  Company Number: None

PATIENT
  Age: 58 Year
  Sex: Female
  Weight: 86.85 kg

DRUGS (1)
  1. CHLORAPREP [Suspect]
     Active Substance: CHLORHEXIDINE GLUCONATE\ISOPROPYL ALCOHOL
     Dosage: FREQUENCY : AS NEEDED;?
     Route: 003

REACTIONS (8)
  - Dermatitis contact [None]
  - Drug hypersensitivity [None]
  - Application site pruritus [None]
  - Application site erythema [None]
  - Application site pain [None]
  - Blister [None]
  - Physical product label issue [None]
  - Wrong technique in product usage process [None]

NARRATIVE: CASE EVENT DATE: 20240827
